FAERS Safety Report 4396003-6 (Version None)
Quarter: 2004Q3

REPORT INFORMATION
  Report Type: 
  Country: None (occurrence: None)
  Receive Date: 20040708
  Receipt Date: 20040624
  Transmission Date: 20050211
  Serious: Yes (Death)
  Sender: FDA-Public Use
  Company Number: 2004042966

PATIENT
  Sex: Male

DRUGS (3)
  1. GEODON [Suspect]
     Indication: DEPRESSION
     Dosage: 40 MG (20 MG, 2 IN 1 D), ORAL
     Route: 048
     Dates: start: 20040601, end: 20040601
  2. ZOLOFT [Suspect]
     Indication: DEPRESSION
     Dosage: ORAL
     Route: 048
  3. VENLAFAXINE HCL [Concomitant]

REACTIONS (4)
  - COMPLETED SUICIDE [None]
  - CONDITION AGGRAVATED [None]
  - DEPRESSION [None]
  - THERMAL BURN [None]
